FAERS Safety Report 17901956 (Version 1)
Quarter: 2020Q2

REPORT INFORMATION
  Report Type: Spontaneous
  Country: GB (occurrence: GB)
  Receive Date: 20200616
  Receipt Date: 20200616
  Transmission Date: 20200714
  Serious: Yes (Other)
  Sender: FDA-Public Use
  Company Number: GB-JNJFOC-20200613868

PATIENT
  Age: 6 Decade
  Sex: Female

DRUGS (2)
  1. REZOLSTA [Suspect]
     Active Substance: COBICISTAT\DARUNAVIR ETHANOLATE
     Indication: PRODUCT USED FOR UNKNOWN INDICATION
     Dosage: 800/150, ONCE
     Route: 048
  2. TIVICAY [Concomitant]
     Active Substance: DOLUTEGRAVIR SODIUM
     Dosage: ONCE
     Route: 065

REACTIONS (3)
  - Oropharyngeal pain [Unknown]
  - Lymphadenopathy [Unknown]
  - Eye pain [Unknown]

NARRATIVE: CASE EVENT DATE: 2020
